FAERS Safety Report 24943068 (Version 1)
Quarter: 2025Q1

REPORT INFORMATION
  Report Type: Spontaneous
  Country: US (occurrence: None)
  Receive Date: 20250207
  Receipt Date: 20250207
  Transmission Date: 20250408
  Serious: Yes (Disabling, Other)
  Sender: FDA-CTU
  Company Number: None

PATIENT
  Age: 72 Year
  Sex: Female
  Weight: 96.75 kg

DRUGS (15)
  1. VEVYE [Suspect]
     Active Substance: CYCLOSPORINE
     Indication: Dry eye
     Dosage: OTHER QUANTITY : 1 DROP(S);?FREQUENCY : TWICE A DAY;?
     Route: 047
     Dates: start: 20240930, end: 20250131
  2. SPIRONOLACTONE [Concomitant]
     Active Substance: SPIRONOLACTONE
  3. BENAZEPRIL [Concomitant]
     Active Substance: BENAZEPRIL HYDROCHLORIDE
  4. VASCEPA [Concomitant]
     Active Substance: ICOSAPENT ETHYL
  5. TRADJENTA [Concomitant]
     Active Substance: LINAGLIPTIN
  6. GLIPIZIDE [Concomitant]
     Active Substance: GLIPIZIDE
  7. AZELASTINE [Concomitant]
     Active Substance: AZELASTINE
  8. FLUTICASONE [Concomitant]
     Active Substance: FLUTICASONE
  9. azelastine .05% eyedrop [Concomitant]
  10. ASPIRIN [Concomitant]
     Active Substance: ASPIRIN
  11. PROBIOTICS NOS [Concomitant]
     Active Substance: PROBIOTICS NOS
  12. DOCUSATE SODIUM [Concomitant]
     Active Substance: DOCUSATE SODIUM
  13. VITAMIN D [Concomitant]
     Active Substance: VITAMIN D NOS
  14. Omega capsule [Concomitant]
  15. CARVEDILOL [Concomitant]
     Active Substance: CARVEDILOL

REACTIONS (6)
  - Photophobia [None]
  - Vision blurred [None]
  - Skin exfoliation [None]
  - Eye discharge [None]
  - Glare [None]
  - Eyelid margin crusting [None]

NARRATIVE: CASE EVENT DATE: 20241101
